APPROVED DRUG PRODUCT: NEOSTIGMINE METHYLSULFATE
Active Ingredient: NEOSTIGMINE METHYLSULFATE
Strength: 3MG/3ML (1MG/ML)
Dosage Form/Route: SOLUTION;INTRAVENOUS
Application: A216291 | Product #001 | TE Code: AP
Applicant: DR REDDYS LABORATORIES LTD
Approved: Jul 6, 2022 | RLD: No | RS: No | Type: RX